FAERS Safety Report 13441162 (Version 2)
Quarter: 2017Q2

REPORT INFORMATION
  Report Type: Spontaneous
  Country: US (occurrence: US)
  Receive Date: 20170413
  Receipt Date: 20170512
  Transmission Date: 20170830
  Serious: No
  Sender: FDA-Public Use
  Company Number: US-ASTRAZENECA-2017SE35423

PATIENT
  Sex: Female

DRUGS (2)
  1. BYDUREON [Suspect]
     Active Substance: EXENATIDE
     Indication: TYPE 2 DIABETES MELLITUS
     Dosage: PEN
     Route: 058
     Dates: start: 201506
  2. BYDUREON [Suspect]
     Active Substance: EXENATIDE
     Indication: TYPE 2 DIABETES MELLITUS
     Dosage: KIT
     Route: 058
     Dates: start: 201506

REACTIONS (5)
  - Glycosylated haemoglobin increased [Recovered/Resolved]
  - Drug dose omission [Unknown]
  - Device issue [Unknown]
  - Blood glucose decreased [Recovered/Resolved]
  - Device malfunction [Unknown]
